FAERS Safety Report 7267566-8 (Version None)
Quarter: 2011Q1

REPORT INFORMATION
  Report Type: 
  Country: None (occurrence: None)
  Receive Date: 20110201
  Receipt Date: 20110127
  Transmission Date: 20110831
  Serious: Yes (Death, Hospitalization, Other)
  Sender: FDA-Public Use
  Company Number: US-ELI_LILLY_AND_COMPANY-US201002001446

PATIENT
  Sex: Male

DRUGS (21)
  1. MULTI-VITAMIN [Concomitant]
     Dosage: 500 MG, DAILY (1/D)
     Route: 048
  2. MORPHINE [Concomitant]
     Indication: PAIN
     Dates: start: 20080404, end: 20080407
  3. ENALAPRIL MALEATE [Concomitant]
     Dosage: 5 MG, DAILY (1/D)
     Route: 048
  4. HYTRIN [Concomitant]
     Dosage: 2 MG, DAILY (1/D)
     Route: 048
  5. RISPERDAL [Concomitant]
     Indication: DEPRESSION
     Dates: start: 20080111, end: 20080304
  6. ARICEPT [Concomitant]
     Dosage: 10 MG, EACH EVENING
  7. ADVAIR DISKUS 100/50 [Concomitant]
     Dosage: 1 D/F, 2/D
  8. BYETTA [Suspect]
     Dosage: 5 UG, 2/D
     Route: 058
     Dates: start: 20070101, end: 20080201
  9. SPIRIVA [Concomitant]
     Dosage: 18 UG, DAILY (1/D)
     Route: 055
  10. GLUCAGON [Concomitant]
     Dates: start: 20080321
  11. IMIPENEM [Concomitant]
     Route: 042
     Dates: start: 20080201
  12. IMDUR [Concomitant]
     Dosage: 30 MG, DAILY (1/D)
     Route: 048
  13. DETROL LA [Concomitant]
     Dosage: 2 MG, DAILY (1/D)
     Route: 048
  14. LASIX /USA/ [Concomitant]
     Indication: FLUID RETENTION
     Dosage: 40 MG, DAILY (1/D)
     Route: 048
     Dates: start: 20080131, end: 20080227
  15. ATIVAN [Concomitant]
     Indication: ANXIETY
     Dosage: 0.5 MG, 2/D
     Route: 048
  16. QUESTRAN LIGHT [Concomitant]
     Dosage: 4 G, 2/D
     Route: 048
  17. THORAZINE [Concomitant]
     Indication: DEPRESSION
     Dates: start: 20080404, end: 20080406
  18. PROSCAR /USA/ [Concomitant]
     Dosage: 5 MG, EACH EVENING
     Route: 048
  19. ASPIRIN /USA/ [Concomitant]
     Dosage: 81 MG, DAILY (1/D)
     Route: 048
  20. LEXAPRO [Concomitant]
     Dosage: 10 MG, EACH EVENING
     Route: 048
  21. ALBUTEROL SULFATE AND IPRATROPIUM BROMIDE [Concomitant]
     Dosage: UNK, AS NEEDED

REACTIONS (4)
  - RENAL FAILURE ACUTE [None]
  - PANCREATITIS NECROTISING [None]
  - PANCREATITIS ACUTE [None]
  - PANCREATITIS RELAPSING [None]
